FAERS Safety Report 20411107 (Version 1)
Quarter: 2022Q1

REPORT INFORMATION
  Report Type: Spontaneous
  Country: US (occurrence: None)
  Receive Date: 20220201
  Receipt Date: 20220201
  Transmission Date: 20220423
  Serious: Yes (Other)
  Sender: FDA-Public Use
  Company Number: None

PATIENT
  Age: 30 Year
  Sex: Female
  Weight: 99.8 kg

DRUGS (1)
  1. SOTROVIMAB [Suspect]
     Active Substance: SOTROVIMAB
     Indication: COVID-19
     Dates: start: 20220114, end: 20220114

REACTIONS (6)
  - Hypersensitivity [None]
  - Urticaria [None]
  - Dizziness [None]
  - Infusion related reaction [None]
  - Dizziness [None]
  - Exposure during pregnancy [None]

NARRATIVE: CASE EVENT DATE: 20220114
